FAERS Safety Report 7626665-9 (Version None)
Quarter: 2011Q3

REPORT INFORMATION
  Report Type: 
  Country: None (occurrence: None)
  Receive Date: 20110721
  Receipt Date: 20110609
  Transmission Date: 20111222
  Serious: No
  Sender: FDA-Public Use
  Company Number: US-NOVEN-11US002595

PATIENT
  Sex: Male

DRUGS (1)
  1. FENTANYL [Suspect]
     Indication: BACK PAIN
     Dosage: 75 UG, Q72H
     Route: 062

REACTIONS (4)
  - FEELING HOT [None]
  - HEADACHE [None]
  - MUSCULOSKELETAL DISCOMFORT [None]
  - BLOOD GLUCOSE INCREASED [None]
